FAERS Safety Report 9027087 (Version 1)
Quarter: 2013Q1

REPORT INFORMATION
  Report Type: Report from Study
  Country: FR (occurrence: FR)
  Receive Date: 20130123
  Receipt Date: 20130123
  Transmission Date: 20140127
  Serious: Yes (Hospitalization)
  Sender: FDA-Public Use
  Company Number: FR-PFIZER INC-2013023499

PATIENT
  Age: 67 Year
  Sex: Male
  Weight: 61 kg

DRUGS (15)
  1. IRINOTECAN HCL [Suspect]
     Indication: COLORECTAL CANCER METASTATIC
     Dosage: 310 MG EVERY 2 WEEKS
     Route: 042
     Dates: start: 20100506, end: 20100604
  2. IRINOTECAN HCL [Suspect]
     Dosage: UNK
     Route: 042
     Dates: start: 20100826
  3. FLUOROURACIL [Suspect]
     Indication: COLORECTAL CANCER METASTATIC
     Dosage: 690 MG EVERY 2 WEEKS
     Route: 042
     Dates: start: 20100506, end: 20100604
  4. FLUOROURACIL [Suspect]
     Dosage: UNK
     Route: 042
     Dates: start: 20100826
  5. BEVACIZUMAB [Suspect]
     Indication: COLORECTAL CANCER METASTATIC
     Dosage: 200 MG EVERY 2 WEEKS
     Route: 042
     Dates: start: 20100506
  6. BEVACIZUMAB [Suspect]
     Dosage: 300 MG EVERY 2 WEEKS
     Route: 042
     Dates: start: 20100520
  7. BEVACIZUMAB [Suspect]
     Dosage: 300 MG, CYCLIC: EVERY 2 WEEKS
     Route: 042
     Dates: start: 20100604, end: 20100604
  8. BEVACIZUMAB [Suspect]
     Dosage: 300 MG, CYCLIC: EVERY 2 WEEKS
     Route: 042
     Dates: start: 20100826
  9. LEUCOVORIN CALCIUM [Suspect]
     Indication: COLORECTAL CANCER METASTATIC
     Dosage: 69 MG EVERY 2 WEEKS
     Route: 042
     Dates: start: 20100506, end: 20100604
  10. LEUCOVORIN CALCIUM [Suspect]
     Dosage: 69 MG, CYCLIC: EVERY 2 WEEKS
     Dates: start: 20100826
  11. METHYLPREDNISOLONE [Concomitant]
     Dosage: 120 MG
     Dates: start: 20100504, end: 20100826
  12. ATROPINE SULPHATE [Concomitant]
     Dosage: 0.25 MG
     Dates: start: 20100504, end: 20100826
  13. FOLIMET [Concomitant]
     Dosage: UNK
     Dates: start: 20100504, end: 20100606
  14. ZOPHREN [Concomitant]
     Dosage: 8 UNK, UNK
     Dates: start: 20100504, end: 20100826
  15. ONDANSETRON [Concomitant]
     Dosage: 8 MG
     Dates: start: 20100614, end: 20100614

REACTIONS (2)
  - Intestinal operation [Recovered/Resolved]
  - Abdominal pain [Recovered/Resolved]
